FAERS Safety Report 8220031-3 (Version None)
Quarter: 2012Q1

REPORT INFORMATION
  Report Type: 
  Country: None (occurrence: None)
  Receive Date: 20120316
  Receipt Date: 20120308
  Transmission Date: 20120608
  Serious: Yes (Other)
  Sender: FDA-Public Use
  Company Number: ACO_29290_2012

PATIENT
  Age: 49 Year
  Sex: Female

DRUGS (3)
  1. ASPIRIN [Concomitant]
  2. DETROL [Concomitant]
  3. AMPYRA [Suspect]
     Dosage: 10 MG,  10 MG, QD
     Dates: start: 20101101

REACTIONS (2)
  - INAPPROPRIATE SCHEDULE OF DRUG ADMINISTRATION [None]
  - BREAST CANCER [None]
